FAERS Safety Report 4936141-X (Version None)
Quarter: 2006Q1

REPORT INFORMATION
  Report Type: 
  Country: None (occurrence: None)
  Receive Date: 20060307
  Receipt Date: 20051109
  Transmission Date: 20060701
  Serious: No
  Sender: FDA-Public Use
  Company Number: US-GLAXOSMITHKLINE-A0581592A

PATIENT
  Age: 72 Year
  Sex: Female

DRUGS (6)
  1. REQUIP [Suspect]
     Indication: RESTLESS LEGS SYNDROME
     Dosage: .25MG AT NIGHT
     Route: 048
     Dates: start: 20051108
  2. LIPITOR [Concomitant]
  3. DARVOCET [Concomitant]
  4. GABAPENTIN [Concomitant]
  5. QUININE SULFATE [Concomitant]
  6. LISINOPRIL [Concomitant]

REACTIONS (1)
  - HEADACHE [None]
